FAERS Safety Report 7066484-8 (Version None)
Quarter: 2010Q4

REPORT INFORMATION
  Report Type: 
  Country: None (occurrence: None)
  Receive Date: 20101027
  Receipt Date: 20100409
  Transmission Date: 20110411
  Serious: No
  Sender: FDA-Public Use
  Company Number: US-WYE-H13621510

PATIENT
  Weight: 72.64 kg

DRUGS (1)
  1. PREMPHASE 14/14 [Suspect]
     Indication: HORMONE REPLACEMENT THERAPY
     Dosage: 0.625 MG/5 MG  (ONE DOSE ONLY)
     Route: 048
     Dates: start: 20100206, end: 20100206

REACTIONS (3)
  - INSOMNIA [None]
  - NIGHTMARE [None]
  - VISION BLURRED [None]
